FAERS Safety Report 18257751 (Version 1)
Quarter: 2020Q3

REPORT INFORMATION
  Report Type: Spontaneous
  Country: IR (occurrence: IR)
  Receive Date: 20200911
  Receipt Date: 20200911
  Transmission Date: 20201103
  Serious: No
  Sender: FDA-Public Use
  Company Number: IR-LUPIN PHARMACEUTICALS INC.-2020-05636

PATIENT
  Age: 24 Year
  Sex: Female

DRUGS (4)
  1. CLOMIPRAMINE HYDROCHLORIDE. [Suspect]
     Active Substance: CLOMIPRAMINE HYDROCHLORIDE
     Indication: OBSESSIVE-COMPULSIVE DISORDER
     Dosage: 25 MILLIGRAM, QD (AT NIGHT)
     Route: 048
  2. SERTRALINE HYDROCHLORIDE TABLETS [Suspect]
     Active Substance: SERTRALINE HYDROCHLORIDE
     Dosage: 200 MILLIGRAM, QD (SERTRALINE DOSE WAS GRADUALLY INCREASED TO 200 MILLIGRAMS PER DAY WITHIN 2 MONTHS
     Route: 048
  3. CLOMIPRAMINE HYDROCHLORIDE. [Suspect]
     Active Substance: CLOMIPRAMINE HYDROCHLORIDE
     Dosage: 50 MILLIGRAM, QD (AT NIGHT; DOSE INCREASED THREE MONTHS LATER)
     Route: 048
  4. SERTRALINE HYDROCHLORIDE TABLETS [Suspect]
     Active Substance: SERTRALINE HYDROCHLORIDE
     Indication: OBSESSIVE-COMPULSIVE DISORDER
     Dosage: UNK
     Route: 048

REACTIONS (2)
  - Myoclonus [Recovered/Resolved]
  - Therapeutic product effect incomplete [Unknown]
